FAERS Safety Report 13112504 (Version 1)
Quarter: 2017Q1

REPORT INFORMATION
  Report Type: Spontaneous
  Country: US (occurrence: US)
  Receive Date: 20170112
  Receipt Date: 20170112
  Transmission Date: 20170428
  Serious: Yes (Other)
  Sender: FDA-Public Use
  Company Number: None

PATIENT
  Age: 78 Year
  Sex: Female
  Weight: 64.35 kg

DRUGS (23)
  1. POTASSIUM [Concomitant]
     Active Substance: POTASSIUM
  2. ARMOUR THYROID [Concomitant]
     Active Substance: THYROID, PORCINE
  3. ALBUTEROL INHALER [Concomitant]
     Active Substance: ALBUTEROL
  4. 5-LOXIN [Concomitant]
  5. TIKOSYN [Concomitant]
     Active Substance: DOFETILIDE
  6. FLOVENT HFA [Concomitant]
     Active Substance: FLUTICASONE PROPIONATE
  7. ZINC CHELATE [Concomitant]
  8. ELIQUIS [Concomitant]
     Active Substance: APIXABAN
  9. ATIVAN [Concomitant]
     Active Substance: LORAZEPAM
  10. BUMETANIDE. [Concomitant]
     Active Substance: BUMETANIDE
  11. CALCIUM [Concomitant]
     Active Substance: CALCIUM
  12. CALCITONIN SPRAY [Concomitant]
  13. MAGNESIUM GLUCONATE [Concomitant]
     Active Substance: MAGNESIUM GLUCONATE
  14. PRESER VISION AREDS2 [Concomitant]
  15. BIOTIN [Concomitant]
     Active Substance: BIOTIN
  16. TURMERIC ROOT [Concomitant]
  17. DOFETILIDE. [Suspect]
     Active Substance: DOFETILIDE
     Indication: ATRIAL FIBRILLATION
     Route: 048
     Dates: start: 20160615, end: 20170112
  18. METOPROLOL. [Concomitant]
     Active Substance: METOPROLOL
  19. TYLENOL [Concomitant]
     Active Substance: ACETAMINOPHEN
  20. CYTOMEL [Concomitant]
     Active Substance: LIOTHYRONINE SODIUM
  21. PREMARIN [Concomitant]
     Active Substance: ESTROGENS, CONJUGATED
  22. SELENIUM [Concomitant]
     Active Substance: SELENIUM
  23. FLONASE [Concomitant]
     Active Substance: FLUTICASONE PROPIONATE

REACTIONS (3)
  - Drug effect variable [None]
  - Cardiac output decreased [None]
  - Product substitution issue [None]

NARRATIVE: CASE EVENT DATE: 20170112
